FAERS Safety Report 11839643 (Version 1)
Quarter: 2015Q4

REPORT INFORMATION
  Report Type: Spontaneous
  Country: US (occurrence: None)
  Receive Date: 20151214
  Receipt Date: 20151214
  Transmission Date: 20160305
  Serious: No
  Sender: FDA-Public Use
  Company Number: None

PATIENT
  Age: 16 Year
  Sex: Male
  Weight: 93.9 kg

DRUGS (1)
  1. PROZAC [Suspect]
     Active Substance: FLUOXETINE HYDROCHLORIDE
     Dosage: 10 MG/1 PILL
     Route: 048
     Dates: start: 20151104, end: 20151104

REACTIONS (1)
  - Muscle tightness [None]

NARRATIVE: CASE EVENT DATE: 20151104
